FAERS Safety Report 8161033-5 (Version None)
Quarter: 2012Q1

REPORT INFORMATION
  Report Type: 
  Country: None (occurrence: None)
  Receive Date: 20120224
  Receipt Date: 20120216
  Transmission Date: 20120608
  Serious: Yes (Hospitalization)
  Sender: FDA-Public Use
  Company Number: US-BIOGENIDEC-2011BI018969

PATIENT
  Sex: Male

DRUGS (2)
  1. AVONEX [Suspect]
     Indication: MULTIPLE SCLEROSIS
     Route: 030
     Dates: start: 20070603, end: 20071116
  2. AVONEX [Suspect]
     Route: 030
     Dates: start: 20090102, end: 20110501

REACTIONS (1)
  - MULTIPLE SCLEROSIS RELAPSE [None]
